FAERS Safety Report 9953480 (Version 1)
Quarter: 2014Q1

REPORT INFORMATION
  Report Type: Report from Study
  Country: US (occurrence: US)
  Receive Date: 20140304
  Receipt Date: 20140304
  Transmission Date: 20141002
  Serious: No
  Sender: FDA-Public Use
  Company Number: US-ABBVIE-13P-163-1073872-00

PATIENT
  Age: 64 Year
  Sex: Female

DRUGS (21)
  1. HUMIRA [Suspect]
     Indication: RHEUMATOID ARTHRITIS
     Dates: start: 20130304, end: 20130304
  2. HUMIRA [Suspect]
  3. HUMIRA [Suspect]
  4. CHLORPHENIRAMINE MALEATE [Concomitant]
     Indication: HYPERSENSITIVITY
  5. LISINOPRIL [Concomitant]
     Indication: BLOOD PRESSURE
     Dosage: IN THE AM AND AT NIGHT
  6. ASACOL [Concomitant]
     Indication: COLITIS
  7. FERROUS GLUCONATE [Concomitant]
     Indication: ANAEMIA
  8. VITAMIN D [Concomitant]
     Indication: PRODUCT USED FOR UNKNOWN INDICATION
  9. ZETIA [Concomitant]
     Indication: BLOOD CHOLESTEROL
  10. HYDROCHLOROTHIAZIDE [Concomitant]
     Indication: BLOOD PRESSURE
  11. FOLIC ACID [Concomitant]
     Indication: RHEUMATOID ARTHRITIS
  12. METHOTREXATE [Concomitant]
     Indication: RHEUMATOID ARTHRITIS
  13. PREDNISONE [Concomitant]
     Indication: RHEUMATOID ARTHRITIS
     Dosage: WEANING OFF
  14. ASA [Concomitant]
     Indication: CEREBROVASCULAR ACCIDENT PROPHYLAXIS
     Dosage: ONE LOW DOSE
  15. FISH OIL [Concomitant]
     Indication: PRODUCT USED FOR UNKNOWN INDICATION
  16. MULTIPLE VITAMINS [Concomitant]
     Indication: VITAMIN SUPPLEMENTATION
     Dosage: DAILY
  17. CALTRATE + D [Concomitant]
     Indication: PRODUCT USED FOR UNKNOWN INDICATION
  18. GARLIC [Concomitant]
     Indication: BLOOD CHOLESTEROL
  19. IRON [Concomitant]
     Indication: ANAEMIA
  20. HUMULIN N [Concomitant]
     Indication: PRODUCT USED FOR UNKNOWN INDICATION
     Dosage: IN THE MORNING ABOUT 2 HOURS AFTER TAKING PREDNISONE
  21. LORATADINE [Concomitant]
     Indication: HYPERSENSITIVITY

REACTIONS (7)
  - Blood glucose decreased [Unknown]
  - Abdominal pain [Recovering/Resolving]
  - Sinus congestion [Unknown]
  - Hypertension [Unknown]
  - Flushing [Recovered/Resolved]
  - Headache [Recovered/Resolved]
  - Epistaxis [Unknown]
